FAERS Safety Report 10736556 (Version 1)
Quarter: 2015Q1

REPORT INFORMATION
  Report Type: Spontaneous
  Country: US (occurrence: None)
  Receive Date: 20150123
  Receipt Date: 20150123
  Transmission Date: 20150721
  Serious: Yes (Hospitalization)
  Sender: FDA-Public Use
  Company Number: None

PATIENT
  Age: 59 Year
  Sex: Male
  Weight: 102.6 kg

DRUGS (1)
  1. CLOZAPINE. [Suspect]
     Active Substance: CLOZAPINE
     Indication: SCHIZOAFFECTIVE DISORDER
     Route: 048

REACTIONS (9)
  - Colitis ischaemic [None]
  - Nausea [None]
  - Septic shock [None]
  - Respiratory failure [None]
  - Megacolon [None]
  - Metabolic acidosis [None]
  - Abdominal pain lower [None]
  - Abdominal distension [None]
  - Ileus [None]

NARRATIVE: CASE EVENT DATE: 20150109
